FAERS Safety Report 5298532-X (Version None)
Quarter: 2007Q2

REPORT INFORMATION
  Report Type: 
  Country: None (occurrence: None)
  Receive Date: 20070409
  Receipt Date: 20070402
  Transmission Date: 20071010
  Serious: Yes (Death)
  Sender: FDA-Public Use
  Company Number: 237143K06USA

PATIENT
  Age: 70 Year
  Sex: Female
  Weight: 69 kg

DRUGS (1)
  1. REBIF [Suspect]
     Indication: MULTIPLE SCLEROSIS
     Dosage: 44 MCG, 3 IN 1 WEEKS, SUBCUTANEOUS
     Route: 058
     Dates: start: 20041122, end: 20060801

REACTIONS (6)
  - HEPATIC NECROSIS [None]
  - IMMOBILE [None]
  - PERICARDITIS [None]
  - PLEURISY [None]
  - PROGRESSIVE MULTIPLE SCLEROSIS [None]
  - PYELONEPHRITIS ACUTE [None]
